FAERS Safety Report 7369234-0 (Version None)
Quarter: 2011Q1

REPORT INFORMATION
  Report Type: 
  Country: None (occurrence: None)
  Receive Date: 20110323
  Receipt Date: 20110316
  Transmission Date: 20110831
  Serious: Yes (Other)
  Sender: FDA-Public Use
  Company Number: US-ROCHE-765962

PATIENT
  Sex: Female
  Weight: 49.9 kg

DRUGS (3)
  1. BIRTH CONTROL PILLS [Concomitant]
  2. ACCUTANE [Suspect]
     Route: 048
     Dates: start: 20010108
  3. ACCUTANE [Suspect]
     Route: 048

REACTIONS (2)
  - IRRITABLE BOWEL SYNDROME [None]
  - ANAEMIA [None]
